FAERS Safety Report 6368206-2 (Version None)
Quarter: 2009Q3

REPORT INFORMATION
  Report Type: 
  Country: None (occurrence: None)
  Receive Date: 20090922
  Receipt Date: 20090915
  Transmission Date: 20100115
  Serious: Yes (Hospitalization)
  Sender: FDA-Public Use
  Company Number: JP-BRISTOL-MYERS SQUIBB COMPANY-14552020

PATIENT
  Age: 26 Year
  Sex: Male
  Weight: 52 kg

DRUGS (6)
  1. ABILIFY [Suspect]
     Indication: SCHIZOPHRENIA
     Dosage: 18JUL-31JUL08:12MG/01AUG-28AUG08:18MG/29AUG08-14JAN09:24MG/15JAN-18FEB09:21MG/19FEB:24MG/03APR:21MG
     Route: 048
     Dates: start: 20080718, end: 20090708
  2. LEXOTAN [Concomitant]
     Dosage: (5 MG) 08-MAY-09 PRN
     Dates: start: 20080717
  3. BENZALIN [Concomitant]
     Dosage: FORM:TABLET
     Dates: start: 20080717, end: 20090415
  4. AMOBAN [Concomitant]
     Dosage: FORM:TABLET
     Dates: start: 20080717
  5. RESLIN [Concomitant]
     Dates: start: 20080717
  6. WYPAX [Concomitant]
     Dosage: INCREASED FROM 2MG TO 3MG/DAY;FORM:TABLET.ON 18JUN09 DOSE REDUCED TO 2MG/DAY
     Dates: start: 20090204

REACTIONS (13)
  - ABDOMINAL DISCOMFORT [None]
  - ABDOMINAL PAIN UPPER [None]
  - CONFUSIONAL STATE [None]
  - DELUSION [None]
  - DISCOMFORT [None]
  - HALLUCINATION [None]
  - HALLUCINATION, AUDITORY [None]
  - IRRITABILITY [None]
  - MALAISE [None]
  - PSYCHIATRIC SYMPTOM [None]
  - RESTLESSNESS [None]
  - SEDATION [None]
  - TREATMENT NONCOMPLIANCE [None]
